FAERS Safety Report 17203562 (Version 3)
Quarter: 2020Q2

REPORT INFORMATION
  Report Type: Spontaneous
  Country: US (occurrence: US)
  Receive Date: 20191226
  Receipt Date: 20200619
  Transmission Date: 20200713
  Serious: No
  Sender: FDA-Public Use
  Company Number: US-CATALYST PHARMACEUTICALS, INC-2019CAT00391

PATIENT
  Sex: Female
  Weight: 92.97 kg

DRUGS (29)
  1. IRON [Concomitant]
     Active Substance: IRON
  2. ALBUTEROL. [Concomitant]
     Active Substance: ALBUTEROL
  3. MUCINEX [Concomitant]
     Active Substance: GUAIFENESIN
     Indication: SEASONAL ALLERGY
  4. NEXIUM [Concomitant]
     Active Substance: ESOMEPRAZOLE MAGNESIUM
  5. PREDNISONE. [Concomitant]
     Active Substance: PREDNISONE
  6. ZOFRAN [Concomitant]
     Active Substance: ONDANSETRON HYDROCHLORIDE
  7. GABAPENTIN. [Concomitant]
     Active Substance: GABAPENTIN
  8. VITAMIN B12 [Concomitant]
     Active Substance: CYANOCOBALAMIN
  9. POTASSIUM CHLORIDE. [Concomitant]
     Active Substance: POTASSIUM CHLORIDE
  10. PRAVASTATIN. [Concomitant]
     Active Substance: PRAVASTATIN
  11. WARFARIN [Concomitant]
     Active Substance: WARFARIN
  12. FIRDAPSE [Suspect]
     Active Substance: AMIFAMPRIDINE
     Indication: MYASTHENIC SYNDROME
     Dosage: 10 MG, 3X/DAY
     Route: 048
     Dates: start: 2019, end: 201907
  13. ADVAIR DISKUS [Concomitant]
     Active Substance: FLUTICASONE PROPIONATE\SALMETEROL XINAFOATE
  14. FOLIC ACID. [Concomitant]
     Active Substance: FOLIC ACID
  15. BIOTIN [Concomitant]
     Active Substance: BIOTIN
  16. MELATONIN [Concomitant]
     Active Substance: MELATONIN
  17. FIRDAPSE [Suspect]
     Active Substance: AMIFAMPRIDINE
     Dosage: 20 MG, 3X/DAY
     Route: 048
     Dates: start: 201907
  18. FIRDAPSE [Suspect]
     Active Substance: AMIFAMPRIDINE
     Dosage: 20 MG, 3X/DAY
     Route: 048
  19. L-THYROXINE [Concomitant]
     Active Substance: LEVOTHYROXINE
  20. METROGEL [Concomitant]
     Active Substance: METRONIDAZOLE
  21. SINGULAIR [Concomitant]
     Active Substance: MONTELUKAST SODIUM
  22. AZATHIOPRINE. [Concomitant]
     Active Substance: AZATHIOPRINE
  23. FUROSEMIDE. [Concomitant]
     Active Substance: FUROSEMIDE
  24. ^MENTION^ (PRESUMED MESTINON) [Concomitant]
  25. VITAMIN C [Concomitant]
     Active Substance: ASCORBIC ACID
  26. CALTRATE [Concomitant]
     Active Substance: CALCIUM CARBONATE
  27. IVIG [Concomitant]
     Active Substance: HUMAN IMMUNOGLOBULIN G
     Dosage: UNK, 4X/YEAR (EVERY 3 MONTHS)
  28. METOPROLOL. [Concomitant]
     Active Substance: METOPROLOL
  29. MIDODRINE [Concomitant]
     Active Substance: MIDODRINE

REACTIONS (4)
  - Blood pressure increased [Not Recovered/Not Resolved]
  - Hypoaesthesia [Not Recovered/Not Resolved]
  - Peripheral swelling [Not Recovered/Not Resolved]
  - Paraesthesia [Not Recovered/Not Resolved]

NARRATIVE: CASE EVENT DATE: 2019
